FAERS Safety Report 23446850 (Version 1)
Quarter: 2024Q1

REPORT INFORMATION
  Report Type: Spontaneous
  Country: ES (occurrence: ES)
  Receive Date: 20240126
  Receipt Date: 20240126
  Transmission Date: 20240409
  Serious: Yes (Congenital Anomaly)
  Sender: FDA-Public Use
  Company Number: ES-JNJFOC-20240168957

PATIENT

DRUGS (2)
  1. SIMPONI [Suspect]
     Active Substance: GOLIMUMAB
     Indication: Colitis ulcerative
     Route: 064
     Dates: start: 20190104, end: 20230727
  2. SIMPONI [Suspect]
     Active Substance: GOLIMUMAB
     Dosage: LAST DRUG APPLICATION 18-OCT-2022
     Route: 064
     Dates: start: 20220104

REACTIONS (2)
  - Trisomy 21 [Recovered/Resolved]
  - Foetal exposure during pregnancy [Recovered/Resolved]

NARRATIVE: CASE EVENT DATE: 20220615
